FAERS Safety Report 11809367 (Version 5)
Quarter: 2016Q1

REPORT INFORMATION
  Report Type: Report from Study
  Country: CA (occurrence: CA)
  Receive Date: 20151207
  Receipt Date: 20160223
  Transmission Date: 20160525
  Serious: Yes (Hospitalization, Other)
  Sender: FDA-Public Use
  Company Number: CA-ROCHE-1630790

PATIENT
  Age: 79 Year
  Sex: Female

DRUGS (15)
  1. ASAPHEN [Concomitant]
     Active Substance: ASPIRIN
  2. ACTEMRA [Suspect]
     Active Substance: TOCILIZUMAB
     Route: 042
     Dates: start: 20151127
  3. SANDOL P [Concomitant]
  4. VISKEN [Concomitant]
     Active Substance: PINDOLOL
  5. FIORINAL (CANADA) [Concomitant]
  6. LIPITOR [Concomitant]
     Active Substance: ATORVASTATIN CALCIUM
  7. OMEPRAZOLE. [Concomitant]
     Active Substance: OMEPRAZOLE
  8. METHOTREXATE [Concomitant]
     Active Substance: METHOTREXATE
  9. AMLODIPINE [Concomitant]
     Active Substance: AMLODIPINE BESYLATE
  10. TOVIAZ [Concomitant]
     Active Substance: FESOTERODINE FUMARATE
  11. ELAVIL [Concomitant]
     Active Substance: AMITRIPTYLINE HYDROCHLORIDE
  12. PREDNISONE. [Concomitant]
     Active Substance: PREDNISONE
  13. RIVOTRIL [Concomitant]
     Active Substance: CLONAZEPAM
  14. FOLIC ACID. [Concomitant]
     Active Substance: FOLIC ACID
  15. ACTEMRA [Suspect]
     Active Substance: TOCILIZUMAB
     Indication: TEMPORAL ARTERITIS
     Route: 042
     Dates: start: 20150612

REACTIONS (7)
  - Enterocolitis haemorrhagic [Unknown]
  - Poor peripheral circulation [Not Recovered/Not Resolved]
  - Musculoskeletal stiffness [Not Recovered/Not Resolved]
  - Pain [Not Recovered/Not Resolved]
  - Off label use [Unknown]
  - Infusion related reaction [Unknown]
  - Gastroenteritis [Unknown]

NARRATIVE: CASE EVENT DATE: 20150612
